FAERS Safety Report 6896979-9 (Version None)
Quarter: 2010Q3

REPORT INFORMATION
  Report Type: 
  Country: None (occurrence: None)
  Receive Date: 20100802
  Receipt Date: 20070302
  Transmission Date: 20110219
  Serious: No
  Sender: FDA-Public Use
  Company Number: US-PFIZER INC-2007017322

PATIENT
  Sex: Male

DRUGS (3)
  1. LYRICA [Suspect]
     Indication: PAIN
  2. DICLOFENAC [Concomitant]
  3. NEURONTIN [Concomitant]

REACTIONS (4)
  - DISSOCIATION [None]
  - DIZZINESS [None]
  - FEELING ABNORMAL [None]
  - MOOD ALTERED [None]
